FAERS Safety Report 8391151-8 (Version None)
Quarter: 2012Q2

REPORT INFORMATION
  Report Type: 
  Country: None (occurrence: None)
  Receive Date: 20120529
  Receipt Date: 20120515
  Transmission Date: 20120825
  Serious: Yes (Hospitalization)
  Sender: FDA-Public Use
  Company Number: FR-ELI_LILLY_AND_COMPANY-FR201203002537

PATIENT
  Sex: Female

DRUGS (13)
  1. ACETAMINOPHEN [Concomitant]
     Dosage: UNK, PRN
     Dates: start: 20120101
  2. VITAMIN D [Concomitant]
     Indication: VITAMIN D DEFICIENCY
     Dosage: 100.000 IU, MONTHLY (1/M)
     Route: 048
     Dates: start: 20120112
  3. MIRTAZAPINE [Concomitant]
     Dosage: 15 MG, QD
     Route: 048
     Dates: start: 20120106
  4. ZYPREXA [Suspect]
     Dosage: 5 MG, QD
     Route: 065
     Dates: start: 20120124
  5. ASPIRIN [Concomitant]
     Dosage: UNK
     Route: 048
  6. MOVIPREP [Concomitant]
     Indication: CONSTIPATION
     Dosage: 2 DF, QD
     Route: 048
     Dates: start: 20120101
  7. ZYPREXA [Suspect]
     Dosage: 5 MG, QD
     Route: 048
     Dates: start: 20120111, end: 20120120
  8. MEMANTINE HYDROCHLORIDE [Concomitant]
     Indication: SENILE DEMENTIA
     Dosage: 10 MG, QD
     Dates: start: 20120112, end: 20120120
  9. IMOVANE [Concomitant]
     Dosage: 1 DF, QD
     Route: 048
     Dates: start: 20120106
  10. ESCITALOPRAM [Concomitant]
     Indication: ABNORMAL BEHAVIOUR
     Dosage: UNK
     Dates: start: 20120104, end: 20120106
  11. OXAZEPAM [Concomitant]
     Indication: ABNORMAL BEHAVIOUR
     Dosage: 20 MG, QD
     Dates: start: 20111201
  12. FURADANTIN [Concomitant]
     Indication: URINARY TRACT INFECTION
     Dosage: 300 MG, QD
     Route: 048
     Dates: start: 20120106, end: 20120113
  13. MEMANTINE HYDROCHLORIDE [Concomitant]
     Dosage: 10 MG, QD
     Dates: start: 20120124

REACTIONS (4)
  - ABNORMAL BEHAVIOUR [None]
  - FALL [None]
  - HYPERTENSION [None]
  - CONFUSIONAL STATE [None]
